FAERS Safety Report 22071037 (Version 3)
Quarter: 2023Q1

REPORT INFORMATION
  Report Type: Report from Study
  Country: EG (occurrence: EG)
  Receive Date: 20230307
  Receipt Date: 20230327
  Transmission Date: 20230418
  Serious: Yes (Other)
  Sender: FDA-Public Use
  Company Number: EG-002147023-NVSC2023EG048197

PATIENT
  Age: 48 Year
  Sex: Male

DRUGS (1)
  1. GILENYA [Suspect]
     Active Substance: FINGOLIMOD HYDROCHLORIDE
     Indication: Multiple sclerosis
     Dosage: 1 DOSAGE FORM, QD
     Route: 048
     Dates: start: 20221224

REACTIONS (8)
  - Neuropathy peripheral [Not Recovered/Not Resolved]
  - Burning sensation [Not Recovered/Not Resolved]
  - Ophthalmoplegia [Not Recovered/Not Resolved]
  - Visual impairment [Not Recovered/Not Resolved]
  - Nasopharyngitis [Recovered/Resolved]
  - Cough [Recovered/Resolved]
  - Headache [Not Recovered/Not Resolved]
  - Product use issue [Unknown]

NARRATIVE: CASE EVENT DATE: 20230101
